FAERS Safety Report 6004622-6 (Version None)
Quarter: 2008Q4

REPORT INFORMATION
  Report Type: 
  Country: None (occurrence: None)
  Receive Date: 20081216
  Receipt Date: 20080912
  Transmission Date: 20090506
  Serious: No
  Sender: FDA-Public Use
  Company Number: US-BRISTOL-MYERS SQUIBB COMPANY-14333926

PATIENT
  Age: 66 Year
  Sex: Female
  Weight: 99 kg

DRUGS (8)
  1. PRAVACHOL [Suspect]
     Indication: BLOOD CHOLESTEROL INCREASED
     Dosage: DID NOT TAKE ON 08SEP08 OR 10SEP08. SHE TOOK AT 11:30 PM ON 11SEP08 AND AT 3:30 AM
     Dates: start: 20080908
  2. PRAVACHOL [Suspect]
     Indication: ARTERIOSCLEROSIS
     Dosage: DID NOT TAKE ON 08SEP08 OR 10SEP08. SHE TOOK AT 11:30 PM ON 11SEP08 AND AT 3:30 AM
     Dates: start: 20080908
  3. CARDIZEM [Concomitant]
  4. COUMADIN [Concomitant]
  5. TOPROL-XL [Concomitant]
  6. GLUCOPHAGE [Concomitant]
  7. LIBRIUM [Concomitant]
  8. AMITRIPTYLINE HCL [Concomitant]

REACTIONS (8)
  - BURNING SENSATION [None]
  - DRY MOUTH [None]
  - FATIGUE [None]
  - FEELING COLD [None]
  - OROPHARYNGEAL PAIN [None]
  - PRODUCTIVE COUGH [None]
  - SLEEP DISORDER [None]
  - SOMNOLENCE [None]
